FAERS Safety Report 12696498 (Version 1)
Quarter: 2016Q3

REPORT INFORMATION
  Report Type: Spontaneous
  Country: US (occurrence: US)
  Receive Date: 20160830
  Receipt Date: 20160830
  Transmission Date: 20161109
  Serious: No
  Sender: FDA-Public Use
  Company Number: US-LEO PHARMA-243654

PATIENT
  Age: 56 Year
  Sex: Female
  Weight: 70 kg

DRUGS (2)
  1. BABY ASPIRIN [Concomitant]
     Active Substance: ASPIRIN
     Indication: PRODUCT USED FOR UNKNOWN INDICATION
  2. PICATO [Suspect]
     Active Substance: INGENOL MEBUTATE
     Indication: PRECANCEROUS SKIN LESION
     Dosage: APPLY ONCE DAILY FOR TWO CONSECUTIVE DAYS
     Route: 061
     Dates: start: 20160820

REACTIONS (8)
  - Application site erythema [Not Recovered/Not Resolved]
  - Application site vesicles [Not Recovered/Not Resolved]
  - Drug administration error [Unknown]
  - Application site pain [Not Recovered/Not Resolved]
  - Incorrect drug administration duration [Unknown]
  - Nausea [Recovered/Resolved]
  - Headache [Recovering/Resolving]
  - Sleep disorder [Not Recovered/Not Resolved]

NARRATIVE: CASE EVENT DATE: 20160820
